FAERS Safety Report 13518803 (Version 3)
Quarter: 2017Q3

REPORT INFORMATION
  Report Type: Report from Study
  Country: US (occurrence: US)
  Receive Date: 20170505
  Receipt Date: 20170815
  Transmission Date: 20171127
  Serious: Yes (Hospitalization, Other)
  Sender: FDA-Public Use
  Company Number: US-PFIZER INC-2016603214

PATIENT
  Age: 82 Year
  Sex: Female

DRUGS (2)
  1. IBRANCE [Suspect]
     Active Substance: PALBOCICLIB
     Indication: BREAST CANCER
     Dosage: 75 MG, CYCLIC [DAILY FOR 3 WEEKS ON/1 WEEK OFF]
     Route: 048
     Dates: start: 20161221, end: 20170424
  2. ANASTROZOLE. [Concomitant]
     Active Substance: ANASTROZOLE
     Dosage: UNK

REACTIONS (25)
  - Muscular weakness [Unknown]
  - Feeling abnormal [Unknown]
  - Rectal discharge [Unknown]
  - Pyrexia [Unknown]
  - Asthenia [Unknown]
  - Nausea [Not Recovered/Not Resolved]
  - Diarrhoea [Unknown]
  - Atrial fibrillation [Unknown]
  - Vomiting [Unknown]
  - Pain in extremity [Unknown]
  - Arthralgia [Unknown]
  - Irregular sleep wake rhythm disorder [Unknown]
  - Anxiety [Unknown]
  - Abdominal pain upper [Recovered/Resolved]
  - Abdominal pain [Recovered/Resolved]
  - Headache [Unknown]
  - Cystitis [Unknown]
  - Product use in unapproved indication [Unknown]
  - Hot flush [Unknown]
  - White blood cell count decreased [Unknown]
  - Abdominal discomfort [Recovered/Resolved]
  - Constipation [Unknown]
  - Nervousness [Unknown]
  - Balance disorder [Unknown]
  - Insomnia [Unknown]

NARRATIVE: CASE EVENT DATE: 20170205
